FAERS Safety Report 4736011-6 (Version None)
Quarter: 2005Q3

REPORT INFORMATION
  Report Type: 
  Country: None (occurrence: None)
  Receive Date: 20050805
  Receipt Date: 20050419
  Transmission Date: 20060218
  Serious: Yes (Other)
  Sender: FDA-Public Use
  Company Number: US-MERCK-0504USA03741

PATIENT
  Age: 33 Year
  Sex: Female
  Weight: 50 kg

DRUGS (4)
  1. VIOXX [Suspect]
     Indication: PAIN IN EXTREMITY
     Route: 048
     Dates: start: 20011001, end: 20040930
  2. VIOXX [Suspect]
     Route: 048
     Dates: start: 20011001, end: 20040930
  3. VIOXX [Suspect]
     Indication: BACK PAIN
     Route: 048
     Dates: start: 20011001, end: 20040930
  4. VIOXX [Suspect]
     Route: 048
     Dates: start: 20011001, end: 20040930

REACTIONS (34)
  - BLEEDING TIME ABNORMAL [None]
  - BLOOD CHOLESTEROL INCREASED [None]
  - BLOOD TRIGLYCERIDES INCREASED [None]
  - BREAST MASS [None]
  - CEREBROVASCULAR ACCIDENT [None]
  - CHEST PAIN [None]
  - CHRONIC FATIGUE SYNDROME [None]
  - CONVULSION [None]
  - DEPRESSION [None]
  - DISTURBANCE IN ATTENTION [None]
  - DYSPNOEA [None]
  - ELECTROCARDIOGRAM ABNORMAL [None]
  - GALLBLADDER DISORDER [None]
  - GASTROINTESTINAL DISORDER [None]
  - GASTROOESOPHAGEAL REFLUX DISEASE [None]
  - GENERALISED ANXIETY DISORDER [None]
  - HYPERTENSION [None]
  - HYPOAESTHESIA [None]
  - LIVER DISORDER [None]
  - MIGRAINE [None]
  - MUSCLE SPASMS [None]
  - NAUSEA [None]
  - OSTEOPOROSIS [None]
  - PANIC ATTACK [None]
  - PANIC DISORDER [None]
  - PARALYSIS [None]
  - RENAL DISORDER [None]
  - RHEUMATOID ARTHRITIS [None]
  - SUICIDAL IDEATION [None]
  - SUICIDE ATTEMPT [None]
  - SWELLING [None]
  - TRANSIENT ISCHAEMIC ATTACK [None]
  - UTERINE DISORDER [None]
  - VOMITING [None]
